FAERS Safety Report 6239365-7 (Version None)
Quarter: 2009Q2

REPORT INFORMATION
  Report Type: 
  Country: None (occurrence: None)
  Receive Date: 20090618
  Receipt Date: 20090618
  Transmission Date: 20091009
  Serious: No
  Sender: FDA-Public Use
  Company Number: None

PATIENT
  Sex: Female
  Weight: 55.3388 kg

DRUGS (3)
  1. ZICAM COLD REMEDY GEL SWABS [Suspect]
     Indication: NASOPHARYNGITIS
     Dosage: ONE SWAB FOR 2 NOSTRILS 6 TIMES DAILY
     Dates: start: 20021201, end: 20090130
  2. ZICAM COLD REMEDY GEL SWABS [Suspect]
     Indication: PROPHYLAXIS
     Dosage: ONE SWAB FOR 2 NOSTRILS 6 TIMES DAILY
     Dates: start: 20021201, end: 20090130
  3. ZICAM COLD REMEDY NASAL GEL [Suspect]
     Dosage: ONE PUMP PER NOSTRIL 6 TIMES DAILY

REACTIONS (2)
  - ANOSMIA [None]
  - HYPOGEUSIA [None]
